FAERS Safety Report 9550405 (Version 1)
Quarter: 2013Q3

REPORT INFORMATION
  Report Type: Spontaneous
  Country: US (occurrence: US)
  Receive Date: 20130924
  Receipt Date: 20130924
  Transmission Date: 20140515
  Serious: No
  Sender: FDA-Public Use
  Company Number: US-SANOFI-AVENTIS-2013SA076338

PATIENT
  Sex: Female

DRUGS (6)
  1. AUBAGIO [Suspect]
     Indication: MULTIPLE SCLEROSIS
     Route: 048
     Dates: start: 20130612
  2. XANAX [Concomitant]
     Route: 065
  3. SOMA [Concomitant]
     Route: 065
  4. GABAPENTIN [Concomitant]
     Route: 065
  5. NORCO [Concomitant]
     Dosage: DOSE: 7.5-325
     Route: 065
  6. VITAMIN D3 [Concomitant]
     Dosage: SFGL DOSE:1000 UNIT(S)
     Route: 065

REACTIONS (2)
  - Pain in extremity [Recovering/Resolving]
  - Alopecia [Recovering/Resolving]
